FAERS Safety Report 19934081 (Version 3)
Quarter: 2022Q2

REPORT INFORMATION
  Report Type: Spontaneous
  Country: AU (occurrence: None)
  Receive Date: 20211008
  Receipt Date: 20220624
  Transmission Date: 20220720
  Serious: Yes (Hospitalization, Other)
  Sender: FDA-Public Use
  Company Number: AU-ROCHE-2929472

PATIENT
  Age: 61 Year
  Sex: Male

DRUGS (1)
  1. HEMLIBRA [Suspect]
     Active Substance: EMICIZUMAB-KXWH
     Indication: Factor VIII deficiency
     Dosage: 30MG/1 ML.
     Route: 058

REACTIONS (3)
  - Diverticulitis intestinal perforated [Unknown]
  - Arthralgia [Unknown]
  - Chronic kidney disease [Unknown]
